FAERS Safety Report 11553647 (Version 1)
Quarter: 2015Q3

REPORT INFORMATION
  Report Type: Spontaneous
  Country: US (occurrence: None)
  Receive Date: 20150924
  Receipt Date: 20150924
  Transmission Date: 20151125
  Serious: No
  Sender: FDA-Public Use
  Company Number: None

PATIENT
  Age: 3 Year
  Sex: Male
  Weight: 12.9 kg

DRUGS (1)
  1. PROLEUKIN [Suspect]
     Active Substance: ALDESLEUKIN
     Dosage: 17.2 MILLION IU
     Dates: end: 20150910

REACTIONS (3)
  - Lip swelling [None]
  - Swelling face [None]
  - Oedema [None]

NARRATIVE: CASE EVENT DATE: 20150910
